FAERS Safety Report 5600125-9 (Version None)
Quarter: 2008Q1

REPORT INFORMATION
  Report Type: 
  Country: None (occurrence: None)
  Receive Date: 20080123
  Receipt Date: 20080114
  Transmission Date: 20080703
  Serious: Yes (Hospitalization)
  Sender: FDA-Public Use
  Company Number: B0503878A

PATIENT
  Age: 44 Year
  Sex: Male

DRUGS (13)
  1. VALACYCLOVIR [Suspect]
     Indication: HERPES ZOSTER
     Route: 048
     Dates: start: 20071121, end: 20071129
  2. ADIAZINE [Suspect]
     Indication: TOXOPLASMOSIS
     Route: 048
     Dates: start: 20071119, end: 20071127
  3. LEDERFOLINE [Suspect]
     Indication: TOXOPLASMOSIS
     Route: 048
     Dates: start: 20071119, end: 20071127
  4. TRIFLUCAN [Suspect]
     Route: 048
     Dates: start: 20071121, end: 20071129
  5. NEURONTIN [Suspect]
     Route: 048
     Dates: start: 20071121, end: 20071129
  6. COMBIVIR [Concomitant]
     Indication: HIV INFECTION
     Route: 048
     Dates: start: 20071126, end: 20071129
  7. KALETRA [Concomitant]
     Indication: HIV INFECTION
     Route: 048
     Dates: start: 20071126, end: 20071129
  8. KEPPRA [Concomitant]
     Indication: CONVULSION
     Route: 048
     Dates: start: 20071119
  9. MALOCIDE [Concomitant]
     Indication: TOXOPLASMOSIS
     Route: 048
     Dates: start: 20071119
  10. DALACINE [Concomitant]
     Dates: start: 20071127, end: 20071129
  11. SPASFON [Concomitant]
     Indication: PAIN
     Dates: start: 20071127, end: 20071129
  12. PERFALGAN [Concomitant]
     Indication: PAIN
     Dates: start: 20071127, end: 20071129
  13. ACUPAN [Concomitant]
     Indication: PAIN
     Dates: start: 20071127, end: 20071129

REACTIONS (4)
  - PAIN [None]
  - PYREXIA [None]
  - RASH [None]
  - RENAL COLIC [None]
